FAERS Safety Report 10332550 (Version 2)
Quarter: 2014Q3

REPORT INFORMATION
  Report Type: Spontaneous
  Country: US (occurrence: US)
  Receive Date: 20140722
  Receipt Date: 20140722
  Transmission Date: 20150326
  Serious: No
  Sender: FDA-Public Use
  Company Number: US-UNITED THERAPEUTICS-UTC-040340

PATIENT
  Age: 55 Year
  Sex: Female
  Weight: 133.6 kg

DRUGS (4)
  1. LETAIRIS [Suspect]
     Active Substance: AMBRISENTAN
     Route: 048
     Dates: start: 20120702
  2. REMODULIN [Suspect]
     Active Substance: TREPROSTINIL
     Route: 058
     Dates: start: 20120915
  3. ADCIRCA [Concomitant]
     Active Substance: TADALAFIL
  4. COUMADIN [Concomitant]
     Active Substance: WARFARIN SODIUM

REACTIONS (3)
  - Catheter site discharge [Unknown]
  - Infusion site reaction [Unknown]
  - Infusion site pain [Unknown]

NARRATIVE: CASE EVENT DATE: 201310
